FAERS Safety Report 14335071 (Version 1)
Quarter: 2017Q4

REPORT INFORMATION
  Report Type: Spontaneous
  Country: FR (occurrence: FR)
  Receive Date: 20171229
  Receipt Date: 20171229
  Transmission Date: 20180321
  Serious: Yes (Other)
  Sender: FDA-Public Use
  Company Number: FR-MERCK KGAA-2037974

PATIENT
  Age: 62 Year
  Sex: Female
  Weight: 84 kg

DRUGS (1)
  1. NOVOTHYROX [Suspect]
     Active Substance: LEVOTHYROXINE SODIUM
     Indication: HYPOTHYROIDISM
     Route: 048
     Dates: start: 20170815, end: 20170919

REACTIONS (7)
  - Myalgia [Not Recovered/Not Resolved]
  - Bradycardia [Not Recovered/Not Resolved]
  - Polydipsia [Not Recovered/Not Resolved]
  - Fatigue [Not Recovered/Not Resolved]
  - Tachycardia [Not Recovered/Not Resolved]
  - Nausea [Not Recovered/Not Resolved]
  - Headache [Not Recovered/Not Resolved]

NARRATIVE: CASE EVENT DATE: 20170822
